FAERS Safety Report 11716403 (Version 1)
Quarter: 2015Q4

REPORT INFORMATION
  Report Type: Spontaneous
  Country: GB (occurrence: GB)
  Receive Date: 20151109
  Receipt Date: 20151109
  Transmission Date: 20160304
  Serious: Yes (Other)
  Sender: FDA-Public Use
  Company Number: GB-TEVA-605891ACC

PATIENT
  Age: 56 Year
  Sex: Female

DRUGS (4)
  1. THYROXINE [Concomitant]
     Active Substance: LEVOTHYROXINE
  2. LEVEMIR [Concomitant]
     Active Substance: INSULIN DETEMIR
  3. NOVORAPID [Concomitant]
     Active Substance: INSULIN ASPART
  4. AMITRIPTYLINE [Suspect]
     Active Substance: AMITRIPTYLINE
     Indication: NERVE INJURY
     Dosage: 10 MILLIGRAM DAILY; AT NIGHT
     Route: 048
     Dates: start: 20151015

REACTIONS (1)
  - Ocular vascular disorder [Unknown]

NARRATIVE: CASE EVENT DATE: 20151015
